FAERS Safety Report 9196162 (Version 1)
Quarter: 2013Q1

REPORT INFORMATION
  Report Type: Spontaneous
  Country: ES (occurrence: ES)
  Receive Date: 20130328
  Receipt Date: 20130328
  Transmission Date: 20140127
  Serious: No
  Sender: FDA-Public Use
  Company Number: ES-JNJFOC-20130313404

PATIENT
  Age: 49 Year
  Sex: Male

DRUGS (2)
  1. DUROGESIC [Suspect]
     Indication: SPINAL PAIN
     Route: 062
  2. DUROGESIC [Suspect]
     Indication: SPINAL PAIN
     Route: 062

REACTIONS (3)
  - Drug withdrawal syndrome [Not Recovered/Not Resolved]
  - Drug ineffective [Unknown]
  - Inappropriate schedule of drug administration [Unknown]
